FAERS Safety Report 8936606 (Version 1)
Quarter: 2012Q4

REPORT INFORMATION
  Report Type: 
  Country: US (occurrence: US)
  Receive Date: 20121130
  Receipt Date: 20121130
  Transmission Date: 20130627
  Serious: Yes (Hospitalization, Congenital Anomaly, Other)
  Sender: FDA-Public Use
  Company Number: US-PFIZER INC-2012297498

PATIENT
  Sex: Female
  Weight: 2.28 kg

DRUGS (16)
  1. ZOLOFT [Suspect]
     Dosage: 100 mg, 1x/day
     Route: 064
     Dates: start: 20040109
  2. ZOLOFT [Suspect]
     Dosage: 50 mg, UNK
     Route: 064
  3. ADVAIR [Concomitant]
     Dosage: UNK
     Route: 064
  4. ALBUTEROL [Concomitant]
     Dosage: UNK
     Route: 064
  5. KLONOPIN [Concomitant]
     Dosage: UNK
     Route: 064
  6. VISTARIL [Concomitant]
     Dosage: UNK
     Route: 064
  7. TRAZODONE [Concomitant]
     Dosage: UNK
     Route: 064
  8. PRENATAL VITAMINS [Concomitant]
     Dosage: UNK, every day
     Route: 064
  9. OS-CAL [Concomitant]
     Dosage: 500 mg, UNK
     Route: 064
  10. COLACE [Concomitant]
     Dosage: 100 mg, UNK
     Route: 064
  11. WELLBUTRIN [Concomitant]
     Indication: ANXIETY
     Dosage: 150 mg, UNK
     Route: 064
  12. ZANTAC [Concomitant]
     Dosage: 150 mg, 2x/day
     Route: 064
  13. AMBIEN [Concomitant]
     Dosage: 10 mg, every night at bedtime
     Route: 064
  14. CELESTONE [Concomitant]
     Dosage: UNK, two doses a part for 12 hours
     Route: 064
     Dates: start: 20050728
  15. AMPICILLIN [Concomitant]
     Dosage: UNK
     Route: 064
  16. ZITHROMAX [Concomitant]
     Dosage: 500 mg, UNK
     Route: 064

REACTIONS (22)
  - Maternal exposure during pregnancy [Unknown]
  - Congenital diaphragmatic hernia [Unknown]
  - Ventricular septal defect [Unknown]
  - Atelectasis neonatal [Unknown]
  - Congenital pulmonary hypertension [Unknown]
  - Tricuspid valve incompetence [Unknown]
  - Patent ductus arteriosus [Unknown]
  - Cardiac malposition [Unknown]
  - Cardiac malposition [Unknown]
  - Congenital tracheomalacia [Unknown]
  - Cardiac failure [Unknown]
  - Cleft palate [Unknown]
  - Congenital epiglottal anomaly [Unknown]
  - Laryngeal oedema [Unknown]
  - Micrognathia [Unknown]
  - Dilatation ventricular [Unknown]
  - Atrial septal defect [Unknown]
  - Glossoptosis [Unknown]
  - Umbilical cord abnormality [Unknown]
  - Ventricular hypertrophy [Unknown]
  - Developmental delay [Unknown]
  - Dysmorphism [Unknown]
